FAERS Safety Report 5277786-X (Version None)
Quarter: 2007Q1

REPORT INFORMATION
  Report Type: 
  Country: None (occurrence: None)
  Receive Date: 20070327
  Receipt Date: 20070313
  Transmission Date: 20070707
  Serious: Yes (Hospitalization, Other)
  Sender: FDA-Public Use
  Company Number: US-ELI_LILLY_AND_COMPANY-US200701003781

PATIENT
  Age: 54 Year
  Sex: Female

DRUGS (9)
  1. PROZAC [Suspect]
     Indication: SOCIAL PHOBIA
     Dosage: 20 MG, 3/D
  2. INDERAL [Concomitant]
     Indication: TREMOR
  3. ATIVAN [Concomitant]
  4. KLONOPIN [Concomitant]
  5. BUSPAR [Concomitant]
  6. CHLOR-TRIMETON [Concomitant]
  7. PLETAL [Concomitant]
  8. NORVASC [Concomitant]
  9. TRAMADOL HCL [Concomitant]

REACTIONS (23)
  - ABDOMINAL PAIN UPPER [None]
  - ABNORMAL BEHAVIOUR [None]
  - AGGRESSION [None]
  - AGITATION [None]
  - ANGER [None]
  - DEPRESSION [None]
  - DRUG INEFFECTIVE [None]
  - EYELID OEDEMA [None]
  - FEELING HOT AND COLD [None]
  - HAEMATEMESIS [None]
  - HEADACHE [None]
  - HYPERHIDROSIS [None]
  - IRRITABILITY [None]
  - JOINT SWELLING [None]
  - OEDEMA PERIPHERAL [None]
  - PYREXIA [None]
  - RASH [None]
  - RAYNAUD'S PHENOMENON [None]
  - SKIN BURNING SENSATION [None]
  - SKIN DISCOLOURATION [None]
  - SKIN ULCER [None]
  - SWELLING FACE [None]
  - VOMITING [None]
